FAERS Safety Report 8710867 (Version 3)
Quarter: 2013Q3

REPORT INFORMATION
  Report Type: Report from Study
  Country: MX (occurrence: MX)
  Receive Date: 20120807
  Receipt Date: 20130826
  Transmission Date: 20140515
  Serious: Yes (Hospitalization, Other)
  Sender: FDA-Public Use
  Company Number: PHHY2012MX067440

PATIENT
  Age: 81 Year
  Sex: Male

DRUGS (10)
  1. TEGRETOL 200 LC [Suspect]
     Indication: EPILEPSY
     Dosage: 1 DF, DAILY
     Route: 048
  2. TEGRETOL 200 LC [Suspect]
     Dosage: 0.5 DF, DAILY
     Route: 048
  3. TEGRETOL 200 LC [Suspect]
     Dosage: 400 MG, DAILY
     Route: 048
  4. TEGRETOL 200 LC [Suspect]
     Dosage: 1 DF, DAILY
     Route: 048
  5. EXELON [Suspect]
     Indication: SENILE DEMENTIA
     Dosage: 1 DF, DAILY
     Route: 062
     Dates: start: 2009
  6. EXELON [Suspect]
     Dosage: 9.5 MG, DAILY
     Route: 062
  7. EXELON [Suspect]
     Dosage: 6.5 MG, DAILY
     Route: 062
  8. EXELON [Suspect]
     Dosage: 4.5 MG, DAILY
     Route: 062
  9. EBIXA [Concomitant]
     Dosage: 1 DF, DAILY
     Dates: start: 2009
  10. PAXIL [Concomitant]
     Dosage: 1 DF, DAILY
     Dates: start: 2010

REACTIONS (10)
  - Bacterial infection [Recovered/Resolved]
  - Pyrexia [Recovered/Resolved]
  - Senile dementia [Unknown]
  - Cerebrovascular accident [Recovered/Resolved]
  - Hemiplegia [Unknown]
  - Aortic disorder [Recovered/Resolved]
  - Cardiac disorder [Recovered/Resolved]
  - Back disorder [Unknown]
  - Back pain [Unknown]
  - Gait disturbance [Unknown]
